FAERS Safety Report 10429753 (Version 1)
Quarter: 2014Q3

REPORT INFORMATION
  Report Type: Spontaneous
  Country: SG (occurrence: SG)
  Receive Date: 20140904
  Receipt Date: 20140904
  Transmission Date: 20150326
  Serious: Yes (Death, Hospitalization)
  Sender: FDA-Public Use
  Company Number: SG-CELGENEUS-141-POMAL-14086024

PATIENT
  Age: 56 Year
  Sex: Male
  Weight: 50 kg

DRUGS (9)
  1. MAXOLON [Concomitant]
     Active Substance: METOCLOPRAMIDE HYDROCHLORIDE
     Indication: VOMITING
     Route: 048
     Dates: start: 20140801
  2. AUGMENTIN [Concomitant]
     Active Substance: AMOXICILLIN\CLAVULANATE POTASSIUM
     Indication: INFECTION PROPHYLAXIS
     Dosage: 1875 MILLIGRAM
     Route: 048
     Dates: start: 201408
  3. DEXAMETHASONE. [Suspect]
     Active Substance: DEXAMETHASONE
     Route: 048
     Dates: start: 20140701, end: 20140715
  4. ACYCLOVIR. [Concomitant]
     Active Substance: ACYCLOVIR
     Indication: INFECTION PROPHYLAXIS
     Dosage: 400 MILLIGRAM
     Route: 048
     Dates: start: 201402
  5. POMALYST [Suspect]
     Active Substance: POMALIDOMIDE
     Indication: PLASMA CELL MYELOMA
     Dosage: 3 MILLIGRAM
     Route: 048
     Dates: start: 20140725, end: 20140820
  6. MORPHINE [Concomitant]
     Active Substance: MORPHINE
     Indication: PAIN
     Dosage: 60 MILLIGRAM
     Route: 048
     Dates: start: 20140725
  7. MORPHINE [Concomitant]
     Active Substance: MORPHINE
     Dosage: 15 MILLIGRAM
     Route: 048
     Dates: start: 20140627
  8. DEXAMETHASONE. [Suspect]
     Active Substance: DEXAMETHASONE
     Indication: PLASMA CELL MYELOMA
     Route: 048
     Dates: start: 20140725, end: 20140820
  9. BACTRIM [Concomitant]
     Active Substance: SULFAMETHOXAZOLE\TRIMETHOPRIM
     Indication: INFECTION PROPHYLAXIS
     Dosage: 30 MILLIGRAM
     Route: 048
     Dates: start: 201402

REACTIONS (3)
  - Multi-organ failure [Fatal]
  - Septic shock [Fatal]
  - Neutropenic sepsis [Fatal]

NARRATIVE: CASE EVENT DATE: 20140817
